FAERS Safety Report 8498113-0 (Version None)
Quarter: 2012Q3

REPORT INFORMATION
  Report Type: 
  Country: None (occurrence: None)
  Receive Date: 20120709
  Receipt Date: 20120619
  Transmission Date: 20120928
  Serious: No
  Sender: FDA-Public Use
  Company Number: US-AMGEN-USASP2012038055

PATIENT
  Age: 59 Year
  Sex: Female

DRUGS (1)
  1. ENBREL [Suspect]
     Indication: PSORIASIS
     Dosage: 50 MG, QWK
     Dates: start: 20120519

REACTIONS (11)
  - TONGUE DISCOLOURATION [None]
  - FEELING ABNORMAL [None]
  - SKIN DISCOLOURATION [None]
  - CONTUSION [None]
  - INJECTION SITE PAIN [None]
  - TREMOR [None]
  - INJECTION SITE ERYTHEMA [None]
  - INJECTION SITE REACTION [None]
  - MUSCULAR WEAKNESS [None]
  - PAIN IN EXTREMITY [None]
  - INJECTION SITE SWELLING [None]
